FAERS Safety Report 8474035-6 (Version None)
Quarter: 2012Q2

REPORT INFORMATION
  Report Type: 
  Country: None (occurrence: None)
  Receive Date: 20120628
  Receipt Date: 20120417
  Transmission Date: 20120825
  Serious: Yes (Life-Threatening)
  Sender: FDA-Public Use
  Company Number: US-MYLANLABS-2012S1007949

PATIENT
  Age: 42 Year
  Sex: Female

DRUGS (1)
  1. CLOZAPINE [Suspect]
     Route: 048
     Dates: end: 20120410

REACTIONS (1)
  - AGRANULOCYTOSIS [None]
